FAERS Safety Report 19198269 (Version 2)
Quarter: 2021Q3

REPORT INFORMATION
  Report Type: Spontaneous
  Country: US (occurrence: US)
  Receive Date: 20210430
  Receipt Date: 20210903
  Transmission Date: 20211014
  Serious: No
  Sender: FDA-Public Use
  Company Number: US-JNJFOC-20210457096

PATIENT
  Age: 39 Year
  Sex: Female
  Weight: 96.16 kg

DRUGS (3)
  1. MOTRIN [Suspect]
     Active Substance: IBUPROFEN
     Indication: PAIN
     Route: 065
     Dates: start: 202104
  2. ASPIRIN BAYER [Concomitant]
     Active Substance: ASPIRIN
     Indication: PAIN
     Route: 065
     Dates: start: 202104
  3. COVID?19 VACCINE [Concomitant]
     Indication: PRODUCT USED FOR UNKNOWN INDICATION
     Route: 030
     Dates: start: 20210413

REACTIONS (1)
  - Drug ineffective [Unknown]

NARRATIVE: CASE EVENT DATE: 202104
